FAERS Safety Report 5842878-0 (Version None)
Quarter: 2008Q3

REPORT INFORMATION
  Report Type: 
  Country: None (occurrence: None)
  Receive Date: 20080813
  Receipt Date: 20080805
  Transmission Date: 20090109
  Serious: Yes (Death)
  Sender: FDA-Public Use
  Company Number: US-RANBAXY-2008RR-16985

PATIENT

DRUGS (3)
  1. GABAPENTIN [Suspect]
     Indication: CONVULSION
     Dosage: 300 MG, UNK
     Route: 048
     Dates: start: 20060401
  2. GABAPENTIN [Suspect]
     Dosage: 600 MG, UNK
     Route: 048
     Dates: start: 20060401
  3. NEURONTIN [Suspect]
     Indication: CONVULSION
     Dosage: 300 MG, UNK
     Dates: start: 20060401

REACTIONS (1)
  - COMPLETED SUICIDE [None]
